FAERS Safety Report 5774835-7 (Version None)
Quarter: 2008Q2

REPORT INFORMATION
  Report Type: 
  Country: None (occurrence: None)
  Receive Date: 20080616
  Receipt Date: 20080616
  Transmission Date: 20081010
  Serious: Yes (Disabling, Other)
  Sender: FDA-Public Use
  Company Number: None

PATIENT
  Sex: Female
  Weight: 56.5 kg

DRUGS (4)
  1. CRESTOR [Suspect]
     Indication: BLOOD CHOLESTEROL INCREASED
     Dates: start: 20040430, end: 20040730
  2. CRESTOR [Suspect]
     Indication: BLOOD PRESSURE INCREASED
     Dates: start: 20040430, end: 20040730
  3. CRESTOR [Suspect]
     Indication: EMOTIONAL DISORDER
     Dates: start: 20040430, end: 20040730
  4. BLOOD PRESSURE MEDICATION [Concomitant]

REACTIONS (1)
  - RENAL ARTERY OCCLUSION [None]
